FAERS Safety Report 7388101-X (Version None)
Quarter: 2011Q2

REPORT INFORMATION
  Report Type: 
  Country: None (occurrence: None)
  Receive Date: 20110401
  Receipt Date: 20110318
  Transmission Date: 20111010
  Serious: Yes (Hospitalization, Disabling)
  Sender: FDA-Public Use
  Company Number: US-ELI_LILLY_AND_COMPANY-US201005005765

PATIENT
  Sex: Female
  Weight: 55.329 kg

DRUGS (7)
  1. MULTI-VITAMIN [Concomitant]
  2. FORTEO [Suspect]
     Indication: OSTEOPOROSIS
     Dosage: 20 UG, DAILY (1/D)
     Route: 065
     Dates: start: 20100428
  3. LISINOPRIL [Concomitant]
  4. ACETYLSALICYLIC ACID [Concomitant]
  5. FORTEO [Suspect]
     Dosage: 20 UG, DAILY (1/D)
  6. PROPRANOLOL [Concomitant]
  7. CALCIUM [Concomitant]

REACTIONS (5)
  - INJECTION SITE HAEMATOMA [None]
  - INJECTION SITE ERYTHEMA [None]
  - OSTEOARTHRITIS [None]
  - ABASIA [None]
  - INJECTION SITE DISCOLOURATION [None]
